FAERS Safety Report 7688699-8 (Version None)
Quarter: 2011Q3

REPORT INFORMATION
  Report Type: 
  Country: None (occurrence: None)
  Receive Date: 20110817
  Receipt Date: 20110810
  Transmission Date: 20111222
  Serious: Yes (Hospitalization)
  Sender: FDA-Public Use
  Company Number: US-GLAXOSMITHKLINE-A0941262A

PATIENT
  Age: 76 Year
  Sex: Female
  Weight: 58.4 kg

DRUGS (18)
  1. ASPIRIN [Concomitant]
  2. BIAXIN [Concomitant]
  3. SIMAVASTATIN [Concomitant]
  4. PREDNISONE [Suspect]
     Indication: PRODUCT USED FOR UNKNOWN INDICATION
     Route: 065
  5. AZOR (ALPRAZOLAM) [Concomitant]
  6. METOPROLOL TARTRATE [Concomitant]
  7. MELPHALAN HYDROCHLORIDE [Suspect]
     Indication: MULTIPLE MYELOMA
     Route: 065
  8. LEVEMIR [Concomitant]
  9. HYDROCHLOROTHIAZIDE [Concomitant]
  10. VELCADE [Suspect]
     Indication: PRODUCT USED FOR UNKNOWN INDICATION
     Route: 065
  11. AMITIZA [Concomitant]
  12. MIRALAX [Concomitant]
  13. ONDANSETRON [Concomitant]
  14. CALCIUM CARBONATE [Concomitant]
  15. CARBIDOPA AND LEVODOPA [Concomitant]
  16. METAMUCIL-2 [Concomitant]
  17. BORTEZOMIB [Concomitant]
  18. INVESTIGATIONAL DRUG [Concomitant]

REACTIONS (5)
  - GASTROINTESTINAL HAEMORRHAGE [None]
  - HAEMATOCHEZIA [None]
  - DUODENITIS [None]
  - HAEMORRHOIDS [None]
  - HAEMOGLOBIN DECREASED [None]
